FAERS Safety Report 6069437-1 (Version None)
Quarter: 2009Q1

REPORT INFORMATION
  Report Type: 
  Country: None (occurrence: None)
  Receive Date: 20090206
  Receipt Date: 20090129
  Transmission Date: 20090719
  Serious: Yes (Death)
  Sender: FDA-Public Use
  Company Number: AU-GENENTECH-273778

PATIENT
  Sex: Female
  Weight: 100 kg

DRUGS (2)
  1. METALYSE [Suspect]
     Indication: ACUTE MYOCARDIAL INFARCTION
     Dosage: 50 MG, UNK
     Route: 042
     Dates: start: 20081110
  2. METALYSE [Suspect]
     Indication: THROMBOLYSIS

REACTIONS (1)
  - DEATH [None]
